FAERS Safety Report 8159962-1 (Version None)
Quarter: 2012Q1

REPORT INFORMATION
  Report Type: 
  Country: None (occurrence: None)
  Receive Date: 20120223
  Receipt Date: 20120216
  Transmission Date: 20120608
  Serious: Yes (Other)
  Sender: FDA-Public Use
  Company Number: US-GLAXOSMITHKLINE-A0833076A

PATIENT
  Sex: Female
  Weight: 136.4 kg

DRUGS (5)
  1. LISINOPRIL [Concomitant]
  2. METFORMIN HCL [Concomitant]
  3. AVANDAMET [Suspect]
     Indication: DIABETES MELLITUS
     Route: 048
     Dates: end: 20090101
  4. ZOCOR [Concomitant]
  5. ROSIGLITAZONE MALEATE [Suspect]
     Indication: DIABETES MELLITUS
     Route: 048

REACTIONS (3)
  - MYOCARDIAL INFARCTION [None]
  - CARDIAC FAILURE CONGESTIVE [None]
  - ISCHAEMIC CARDIOMYOPATHY [None]
